FAERS Safety Report 5353628-9 (Version None)
Quarter: 2007Q2

REPORT INFORMATION
  Report Type: 
  Country: None (occurrence: None)
  Receive Date: 20070608
  Receipt Date: 20070608
  Transmission Date: 20071010
  Serious: Yes (Hospitalization)
  Sender: FDA-Public Use
  Company Number: None

PATIENT
  Age: 55 Year
  Sex: Male
  Weight: 135.1719 kg

DRUGS (2)
  1. ALIMTA [Suspect]
     Indication: TONSIL CANCER
     Dosage: 500 MG/M2
     Dates: end: 20070329
  2. OXALIPLATIN [Suspect]
     Indication: TONSIL CANCER
     Dosage: 85MG/M2
     Dates: end: 20070329

REACTIONS (2)
  - DEAFNESS NEUROSENSORY [None]
  - ORAL INTAKE REDUCED [None]
